FAERS Safety Report 11617962 (Version 2)
Quarter: 2015Q4

REPORT INFORMATION
  Report Type: Spontaneous
  Country: US (occurrence: US)
  Receive Date: 20151010
  Receipt Date: 20151117
  Transmission Date: 20160304
  Serious: Yes (Hospitalization, Other)
  Sender: FDA-Public Use
  Company Number: US-ZYDUS-009230

PATIENT
  Age: 29 Year
  Sex: Female

DRUGS (3)
  1. RIBAVIRIN. [Suspect]
     Active Substance: RIBAVIRIN
     Indication: PRODUCT USED FOR UNKNOWN INDICATION
     Dates: start: 20141115, end: 201412
  2. SOVALDI [Suspect]
     Active Substance: SOFOSBUVIR
     Dates: start: 20141115
  3. ASCORBIC ACID/BIOTIN/MINERALS NOS/NICOTINIC ACID/RETINOL/TOCOPHEROL/VITAMIN B NOS/VITAMIN D NOS [Concomitant]
     Dates: start: 20141210

REACTIONS (5)
  - Pre-eclampsia [Recovered/Resolved]
  - Premature delivery [None]
  - Induced labour [Recovered/Resolved]
  - Exposure via father [Recovered/Resolved]
  - Hypertension [None]

NARRATIVE: CASE EVENT DATE: 20141115
